FAERS Safety Report 14583123 (Version 3)
Quarter: 2019Q1

REPORT INFORMATION
  Report Type: Spontaneous
  Country: US (occurrence: US)
  Receive Date: 20180228
  Receipt Date: 20190103
  Transmission Date: 20190417
  Serious: Yes (Hospitalization)
  Sender: FDA-Public Use
  Company Number: US-DSJP-DSU-2017-150983

PATIENT

DRUGS (1)
  1. TRIBENZOR [Suspect]
     Active Substance: AMLODIPINE BESYLATE\HYDROCHLOROTHIAZIDE\OLMESARTAN MEDOXOMIL
     Indication: PRODUCT USED FOR UNKNOWN INDICATION
     Dosage: 20-5-12.5 MG, QD
     Route: 048
     Dates: end: 20150914

REACTIONS (9)
  - Pyrexia [Recovered/Resolved]
  - Weight decreased [Recovering/Resolving]
  - Myalgia [Recovered/Resolved]
  - Fatigue [Recovered/Resolved]
  - Gastritis [Recovering/Resolving]
  - Diverticulum [Recovered/Resolved]
  - Oesophagitis [Recovering/Resolving]
  - Diarrhoea [Recovering/Resolving]
  - Haemorrhoids [Recovered/Resolved]

NARRATIVE: CASE EVENT DATE: 20110126
